FAERS Safety Report 15605430 (Version 1)
Quarter: 2018Q4

REPORT INFORMATION
  Report Type: Report from Study
  Country: DE (occurrence: DE)
  Receive Date: 20181112
  Receipt Date: 20181112
  Transmission Date: 20190205
  Serious: Yes (Hospitalization)
  Sender: FDA-Public Use
  Company Number: DE-ACCORD-091768

PATIENT
  Age: 63 Year
  Sex: Male

DRUGS (10)
  1. PANTOPRAZOL [Concomitant]
     Active Substance: PANTOPRAZOLE SODIUM
  2. MABTHERA [Suspect]
     Active Substance: RITUXIMAB
     Indication: RHEUMATOID ARTHRITIS
     Route: 042
  3. CALCILAC [Concomitant]
     Active Substance: CALCIUM CARBONATE
  4. FOLSAN [Concomitant]
     Active Substance: FOLIC ACID
  5. LISINOPRIL. [Concomitant]
     Active Substance: LISINOPRIL
  6. ETORICOXIB. [Concomitant]
     Active Substance: ETORICOXIB
  7. ASPIRIN. [Concomitant]
     Active Substance: ASPIRIN
  8. METHOTREXATE. [Suspect]
     Active Substance: METHOTREXATE
     Indication: RHEUMATOID ARTHRITIS
     Route: 065
     Dates: end: 201606
  9. HYDROMORPHONE [Concomitant]
     Active Substance: HYDROMORPHONE
  10. AMINEURIN [Concomitant]
     Active Substance: AMITRIPTYLINE HYDROCHLORIDE

REACTIONS (5)
  - Anaemia of malignant disease [Unknown]
  - Pancreatic carcinoma [Unknown]
  - Pulmonary mass [Unknown]
  - Prostate cancer metastatic [Unknown]
  - Helicobacter gastritis [Unknown]

NARRATIVE: CASE EVENT DATE: 20160621
